FAERS Safety Report 6610496-2 (Version None)
Quarter: 2010Q1

REPORT INFORMATION
  Report Type: 
  Country: None (occurrence: None)
  Receive Date: 20100302
  Receipt Date: 20100219
  Transmission Date: 20100710
  Serious: Yes (Hospitalization, Other)
  Sender: FDA-Public Use
  Company Number: PHHY2010FR07341

PATIENT
  Sex: Male

DRUGS (2)
  1. GLEEVEC [Suspect]
     Indication: CHRONIC MYELOID LEUKAEMIA
     Dosage: 400 MG DAILY
     Dates: start: 20070724, end: 20081001
  2. GLEEVEC [Suspect]
     Dosage: 600 MG DAILY
     Dates: start: 20081001

REACTIONS (2)
  - PROSTATE CANCER [None]
  - SURGERY [None]
